FAERS Safety Report 25929293 (Version 6)
Quarter: 2025Q4

REPORT INFORMATION
  Report Type: Report from Study
  Country: US (occurrence: US)
  Receive Date: 20251016
  Receipt Date: 20251225
  Transmission Date: 20260118
  Serious: No
  Sender: SANDOZ
  Company Number: US-SANDOZ-SDZ2025US074445

PATIENT
  Sex: Male

DRUGS (2)
  1. OMNITROPE [Suspect]
     Active Substance: SOMATROPIN
     Indication: Hypopituitarism
     Dosage: 0.8 MG, QD (10 MG/1.5 ML IN CARTRIDGE)
     Dates: start: 20251008
  2. OMNITROPE [Suspect]
     Active Substance: SOMATROPIN
     Dosage: 0.8 IU, QD

REACTIONS (6)
  - Injection site discharge [Unknown]
  - Circumstance or information capable of leading to medication error [Unknown]
  - Incorrect dose administered by device [Unknown]
  - Device use issue [Unknown]
  - Device issue [Unknown]
  - Device leakage [Unknown]

NARRATIVE: CASE EVENT DATE: 20250101
